FAERS Safety Report 26209430 (Version 1)
Quarter: 2025Q4

REPORT INFORMATION
  Report Type: Report from Study
  Country: US (occurrence: US)
  Receive Date: 20251229
  Receipt Date: 20251229
  Transmission Date: 20260118
  Serious: Yes (Death, Other)
  Sender: TAKEDA
  Company Number: US-TAKEDA-2025TUS119670

PATIENT
  Age: 70 Year
  Sex: Male

DRUGS (6)
  1. FRUQUINTINIB [Suspect]
     Active Substance: FRUQUINTINIB
     Indication: Colon cancer
     Dosage: 5 MILLIGRAM
  2. ADVIL [Concomitant]
     Active Substance: IBUPROFEN
     Dosage: UNK
  3. IMODIUM A-D [Concomitant]
     Active Substance: LOPERAMIDE HYDROCHLORIDE
     Dosage: UNK
  4. MOMETASONE [Concomitant]
     Active Substance: MOMETASONE
     Dosage: UNK
  5. ZOFRAN [Concomitant]
     Active Substance: ONDANSETRON HYDROCHLORIDE
     Dosage: UNK
  6. TUMS [Concomitant]
     Active Substance: CALCIUM CARBONATE
     Dosage: UNK

REACTIONS (1)
  - Death [Fatal]
